FAERS Safety Report 16904251 (Version 1)
Quarter: 2019Q4

REPORT INFORMATION
  Report Type: Report from Study
  Country: IE (occurrence: IE)
  Receive Date: 20191010
  Receipt Date: 20191010
  Transmission Date: 20200122
  Serious: Yes (Hospitalization, Other)
  Sender: FDA-Public Use
  Company Number: IE-AMGEN-IRLSL2019160886

PATIENT
  Age: 43 Year
  Sex: Male

DRUGS (4)
  1. SOLIAN [Concomitant]
     Active Substance: AMISULPRIDE
     Dosage: 400 MILLIGRAM, BID
  2. ETORICOXIB. [Concomitant]
     Active Substance: ETORICOXIB
     Dosage: 60 MILLIGRAM, AS NECESSARY
  3. LANSOPRAZOLE. [Concomitant]
     Active Substance: LANSOPRAZOLE
     Dosage: 30 MILLIGRAM, QD
  4. AMGEVITA [Suspect]
     Active Substance: ADALIMUMAB
     Indication: AXIAL SPONDYLOARTHRITIS
     Dosage: 40 MILLIGRAM
     Route: 058
     Dates: start: 201909

REACTIONS (2)
  - Lethargy [Recovered/Resolved]
  - Schizophrenia [Recovered/Resolved]

NARRATIVE: CASE EVENT DATE: 2019
